FAERS Safety Report 8421525-8 (Version None)
Quarter: 2012Q2

REPORT INFORMATION
  Report Type: 
  Country: None (occurrence: None)
  Receive Date: 20120601
  Receipt Date: 20120523
  Transmission Date: 20120825
  Serious: Yes (Other)
  Sender: FDA-Public Use
  Company Number: AUR-APL-2012-01593

PATIENT
  Age: 33 Year
  Sex: Male

DRUGS (12)
  1. VENLAFAXINE HCL [Concomitant]
  2. NULYTELY [Concomitant]
  3. RIBAVIRIN [Suspect]
     Indication: HEPATITIS C
     Dosage: (1200 MG),ORAL
     Route: 048
     Dates: start: 20110516
  4. CLOZAPINE [Suspect]
     Indication: PRODUCT USED FOR UNKNOWN INDICATION
     Dosage: 50 MG IN THE MORNING AND 300 MG IN THE NIGHT (100 MG,2 IN 1 D),ORAL, 200 MG (100 MG, 2 IN 1 D), ORAL
     Route: 048
     Dates: start: 20111025, end: 20120307
  5. CLOZAPINE [Suspect]
     Indication: PRODUCT USED FOR UNKNOWN INDICATION
     Dosage: 50 MG IN THE MORNING AND 300 MG IN THE NIGHT (100 MG,2 IN 1 D),ORAL, 200 MG (100 MG, 2 IN 1 D), ORAL
     Route: 048
     Dates: start: 20120319, end: 20120401
  6. CALCICHEW D3 (LEKOVIT CA) [Concomitant]
  7. OMEPRAZOLE [Concomitant]
  8. RAMIPRIL [Suspect]
     Indication: HYPERTENSION
     Dosage: (2.5 MG, 1 D),ORAL, (5 MG, 1 D),ORAL, (10 MG, 1 D),ORAL
     Route: 048
     Dates: start: 20120302
  9. RAMIPRIL [Suspect]
     Indication: HYPERTENSION
     Dosage: (2.5 MG, 1 D),ORAL, (5 MG, 1 D),ORAL, (10 MG, 1 D),ORAL
     Route: 048
     Dates: start: 20120306, end: 20120309
  10. RAMIPRIL [Suspect]
     Indication: HYPERTENSION
     Dosage: (2.5 MG, 1 D),ORAL, (5 MG, 1 D),ORAL, (10 MG, 1 D),ORAL
     Route: 048
     Dates: start: 20110822
  11. BECLOMETHASONE DIPROPIONATE [Concomitant]
  12. PEGINTERFERON ALFA-2A [Concomitant]

REACTIONS (3)
  - NEUTROPENIA [None]
  - DRUG INTERACTION [None]
  - WHITE BLOOD CELL COUNT DECREASED [None]
